FAERS Safety Report 25025547 (Version 1)
Quarter: 2025Q1

REPORT INFORMATION
  Report Type: Spontaneous
  Country: US (occurrence: US)
  Receive Date: 20250228
  Receipt Date: 20250228
  Transmission Date: 20250408
  Serious: Yes (Hospitalization)
  Sender: MERCK SHARP & DOHME LLC
  Company Number: US-009507513-2256496

PATIENT
  Sex: Female

DRUGS (4)
  1. KEYTRUDA [Suspect]
     Active Substance: PEMBROLIZUMAB
     Indication: Breast cancer
     Dosage: 400 MG EVERY 6 WEEKS
     Route: 042
     Dates: start: 20240517, end: 20241025
  2. NUCALA [Concomitant]
     Active Substance: MEPOLIZUMAB
  3. AZITHROMYCIN [Concomitant]
     Active Substance: AZITHROMYCIN
  4. MONTELUKAST [Concomitant]
     Active Substance: MONTELUKAST

REACTIONS (1)
  - Bronchiolitis [Unknown]

NARRATIVE: CASE EVENT DATE: 20240101
